FAERS Safety Report 11120707 (Version 2)
Quarter: 2015Q2

REPORT INFORMATION
  Report Type: Report from Study
  Country: CO (occurrence: CO)
  Receive Date: 20150519
  Receipt Date: 20150521
  Transmission Date: 20150821
  Serious: Yes (Other)
  Sender: FDA-Public Use
  Company Number: CO-BAYER-2015-038118

PATIENT
  Age: 52 Year
  Sex: Female

DRUGS (1)
  1. BETAFERON [Suspect]
     Active Substance: INTERFERON BETA-1B
     Indication: RELAPSING-REMITTING MULTIPLE SCLEROSIS
     Dosage: 1 DF, QOD
     Route: 058
     Dates: start: 20081218

REACTIONS (6)
  - Muscular weakness [Not Recovered/Not Resolved]
  - Insomnia [Not Recovered/Not Resolved]
  - Paraesthesia [Unknown]
  - Pain [None]
  - Limb discomfort [Not Recovered/Not Resolved]
  - Motor dysfunction [None]

NARRATIVE: CASE EVENT DATE: 20150211
